FAERS Safety Report 8334554-X (Version None)
Quarter: 2012Q2

REPORT INFORMATION
  Report Type: 
  Country: None (occurrence: None)
  Receive Date: 20120503
  Receipt Date: 20110406
  Transmission Date: 20120825
  Serious: No
  Sender: FDA-Public Use
  Company Number: US-TEVA-2011001695

PATIENT
  Sex: Female

DRUGS (2)
  1. NUVIGIL [Suspect]
     Dosage: 75 MILLIGRAM;
     Route: 048
     Dates: start: 20110405
  2. ADDERALL 5 [Concomitant]

REACTIONS (3)
  - CONFUSIONAL STATE [None]
  - FATIGUE [None]
  - DYSARTHRIA [None]
